FAERS Safety Report 9134992 (Version 2)
Quarter: 2013Q3

REPORT INFORMATION
  Report Type: Spontaneous
  Country: US (occurrence: US)
  Receive Date: 20130304
  Receipt Date: 20130731
  Transmission Date: 20140515
  Serious: Yes (Death, Other)
  Sender: FDA-Public Use
  Company Number: US-SANOFI-AVENTIS-2013SA019983

PATIENT
  Age: 51 Year
  Sex: Male

DRUGS (14)
  1. MULTAQ [Suspect]
     Route: 048
  2. ZOLPIDEM [Concomitant]
     Route: 065
  3. ALPRAZOLAM [Concomitant]
     Route: 065
  4. OMEPRAZOLE [Concomitant]
     Route: 065
  5. CYMBALTA [Concomitant]
     Route: 065
  6. SELENIUM SULFIDE [Concomitant]
     Route: 065
  7. ECONAZOLE [Concomitant]
     Route: 065
  8. PROMETHAZINE [Concomitant]
     Route: 065
  9. METHYLPREDNISOLONE [Concomitant]
     Route: 065
  10. AMOXICILLIN/CLAVULANIC ACID [Concomitant]
     Route: 065
  11. ENOXAPARIN [Concomitant]
     Dosage: DOSE: 80/0.8 ML BY INJ.
     Route: 065
  12. WARFARIN SODIUM [Concomitant]
     Route: 065
  13. NEXIUM [Concomitant]
     Route: 065
  14. PROTONIX [Concomitant]
     Route: 048

REACTIONS (3)
  - Cardiac fibrillation [Fatal]
  - Liver injury [Unknown]
  - Cardiac failure chronic [Fatal]
